FAERS Safety Report 7132505-7 (Version None)
Quarter: 2010Q4

REPORT INFORMATION
  Report Type: 
  Country: None (occurrence: None)
  Receive Date: 20101202
  Receipt Date: 20101124
  Transmission Date: 20110411
  Serious: Yes (Hospitalization)
  Sender: FDA-Public Use
  Company Number: JP-ROCHE-742315

PATIENT
  Age: 61 Year
  Sex: Male

DRUGS (6)
  1. PEGASYS [Suspect]
     Dosage: DOSAGE IS UNCERTAIN.
     Route: 058
     Dates: start: 20061101
  2. PEGASYS [Suspect]
     Dosage: DOSAGE IS UNCERTAIN
     Route: 058
     Dates: start: 20100101, end: 20100501
  3. COPEGUS [Suspect]
     Dosage: DOSAGE IS UNCERTAIN.
     Route: 048
     Dates: start: 20061101
  4. COPEGUS [Suspect]
     Dosage: DOSAGE IS UNCERTAIN.
     Route: 048
     Dates: start: 20100101, end: 20100501
  5. PEG-INTRON [Suspect]
     Indication: HEPATITIS C
     Dosage: PEGINTRON(PEGINTERFERON ALFA-2B(GENETICAL RECOMBINATION). DOSAGE IS UNCERTAIN.
     Route: 058
     Dates: start: 20050901
  6. REBETOL [Suspect]
     Indication: HEPATITIS C
     Dosage: DOSAGE IS UNCERTAIN.
     Route: 048
     Dates: start: 20050901

REACTIONS (2)
  - LIVER DISORDER [None]
  - TYPE 1 DIABETES MELLITUS [None]
